FAERS Safety Report 11605509 (Version 1)
Quarter: 2015Q3

REPORT INFORMATION
  Report Type: Spontaneous
  Country: US (occurrence: US)
  Receive Date: 20150916
  Receipt Date: 20150916
  Transmission Date: 20151125
  Serious: No
  Sender: FDA-Public Use
  Company Number: US-ELI_LILLY_AND_COMPANY-US201403009972

PATIENT
  Age: 92 Year
  Sex: Female

DRUGS (1)
  1. HUMALOG MIX75/25 [Suspect]
     Active Substance: INSULIN LISPRO
     Indication: TYPE 2 DIABETES MELLITUS
     Dosage: 8 U, UNKNOWN
     Route: 065
     Dates: start: 2012

REACTIONS (3)
  - Confusional state [Unknown]
  - Dizziness [Unknown]
  - Medication error [Unknown]

NARRATIVE: CASE EVENT DATE: 20140326
